FAERS Safety Report 25255921 (Version 1)
Quarter: 2025Q2

REPORT INFORMATION
  Report Type: Spontaneous
  Country: US (occurrence: US)
  Receive Date: 20250430
  Receipt Date: 20250430
  Transmission Date: 20250716
  Serious: Yes (Death)
  Sender: PFIZER
  Company Number: US-PFIZER INC-202500090027

PATIENT
  Age: 54 Year
  Sex: Male

DRUGS (6)
  1. CABERGOLINE [Suspect]
     Active Substance: CABERGOLINE
     Indication: Prolactin-producing pituitary tumour
  2. CABERGOLINE [Suspect]
     Active Substance: CABERGOLINE
     Dosage: 4.5 MG, WEEKLY
  3. CABERGOLINE [Suspect]
     Active Substance: CABERGOLINE
     Dosage: 1 MG, WEEKLY
  4. CABERGOLINE [Suspect]
     Active Substance: CABERGOLINE
     Dosage: 1.5 MG, 2X/WEEK
  5. CABERGOLINE [Suspect]
     Active Substance: CABERGOLINE
     Dosage: 7 MG, WEEKLY
  6. CABERGOLINE [Suspect]
     Active Substance: CABERGOLINE
     Dosage: 1 MG, DAILY

REACTIONS (2)
  - Drug ineffective [Fatal]
  - Off label use [Unknown]
